FAERS Safety Report 20687892 (Version 1)
Quarter: 2022Q2

REPORT INFORMATION
  Report Type: Spontaneous
  Country: ES (occurrence: ES)
  Receive Date: 20220408
  Receipt Date: 20220408
  Transmission Date: 20220721
  Serious: Yes (Hospitalization)
  Sender: FDA-Public Use
  Company Number: ES-PFIZER INC-202101653418

PATIENT
  Age: 69 Year
  Sex: Male
  Weight: 92.4 kg

DRUGS (9)
  1. TEMOZOLOMIDE [Suspect]
     Active Substance: TEMOZOLOMIDE
     Indication: Glioblastoma
     Dosage: 400 MILLIGRAM, CYCLICAL, 5 DAYS PER CYCLE
     Route: 048
     Dates: start: 20210830, end: 20211008
  2. TEMOZOLOMIDE [Suspect]
     Active Substance: TEMOZOLOMIDE
     Dosage: 150 MILLIGRAM, QD, (DAILY)
     Route: 048
     Dates: start: 20210510, end: 20210627
  3. TEMOZOLOMIDE [Suspect]
     Active Substance: TEMOZOLOMIDE
     Dosage: 300 MILLIGRAM, CYCLICAL, 5 DAYS PER CYCLE
     Route: 048
     Dates: start: 20210802, end: 20210806
  4. BEVACIZUMAB [Suspect]
     Active Substance: BEVACIZUMAB
     Dosage: UNK
     Dates: start: 20211108, end: 20211122
  5. GLASDEGIB [Concomitant]
     Active Substance: GLASDEGIB
     Indication: Glioblastoma
     Dosage: 75 MILLIGRAM, QD, (DAILY)
     Route: 048
     Dates: start: 20210510, end: 20211014
  6. DEXAMETHASONE [Concomitant]
     Active Substance: DEXAMETHASONE
     Indication: Glioblastoma
     Dosage: 4 MILLIGRAM, QD, (DAILY)
     Route: 048
     Dates: start: 20211008
  7. QUETIAPINE [Concomitant]
     Active Substance: QUETIAPINE
     Indication: Insomnia
     Dosage: UNK
     Route: 048
     Dates: start: 20210816
  8. LANSOPRAZOLE [Concomitant]
     Active Substance: LANSOPRAZOLE
     Indication: Pain prophylaxis
     Dosage: 15 MILLIGRAM, QD, (DAILY)
     Dates: start: 20210830
  9. KEPPRA [Concomitant]
     Active Substance: LEVETIRACETAM
     Indication: Neuralgia
     Dosage: 3000 MILLIGRAM, QD, 1500 MG/12H
     Route: 048
     Dates: start: 20211008

REACTIONS (1)
  - Rectal haemorrhage [Recovered/Resolved]

NARRATIVE: CASE EVENT DATE: 20211122
